FAERS Safety Report 24051668 (Version 1)
Quarter: 2024Q3

REPORT INFORMATION
  Report Type: Spontaneous
  Country: US (occurrence: US)
  Receive Date: 20240704
  Receipt Date: 20240704
  Transmission Date: 20241016
  Serious: Yes (Other)
  Sender: BRISTOL MYERS SQUIBB
  Company Number: US-BRISTOL-MYERS SQUIBB COMPANY-2024-099856

PATIENT

DRUGS (1)
  1. SPRYCEL [Suspect]
     Active Substance: DASATINIB
     Indication: Product used for unknown indication

REACTIONS (5)
  - Drug ineffective [Unknown]
  - Intervertebral disc protrusion [Unknown]
  - Neuropathy peripheral [Unknown]
  - White blood cell count increased [Unknown]
  - Myelopathy [Unknown]
